FAERS Safety Report 8213801-9 (Version None)
Quarter: 2012Q1

REPORT INFORMATION
  Report Type: 
  Country: None (occurrence: None)
  Receive Date: 20120316
  Receipt Date: 20120308
  Transmission Date: 20120608
  Serious: Yes (Death)
  Sender: FDA-Public Use
  Company Number: FR-BIOGENIDEC-2012BI002807

PATIENT
  Age: 32 Year
  Sex: Male

DRUGS (5)
  1. CLONAZEPAM [Concomitant]
     Indication: PAIN
  2. MORPHINE DERIVATIVES [Concomitant]
     Indication: PAIN
  3. IMOVANE [Suspect]
     Indication: SEDATIVE THERAPY
     Route: 048
  4. NSAIDS [Concomitant]
  5. TYSABRI [Suspect]
     Indication: MULTIPLE SCLEROSIS
     Route: 042
     Dates: start: 20080620, end: 20111121

REACTIONS (1)
  - COMPLETED SUICIDE [None]
